FAERS Safety Report 8471873-0 (Version None)
Quarter: 2012Q2

REPORT INFORMATION
  Report Type: 
  Country: None (occurrence: None)
  Receive Date: 20120627
  Receipt Date: 20120619
  Transmission Date: 20120825
  Serious: Yes (Hospitalization)
  Sender: FDA-Public Use
  Company Number: US-BAYER-2011-111884

PATIENT
  Age: 21 Year
  Sex: Female
  Weight: 90.703 kg

DRUGS (5)
  1. DROSPIRENONE AND ETHINYL ESTRADIOL [Suspect]
     Indication: MENSTRUAL CYCLE MANAGEMENT
     Dosage: UNK
     Route: 048
     Dates: start: 20030101, end: 20080101
  2. YASMIN [Suspect]
     Indication: MENSTRUAL CYCLE MANAGEMENT
     Dosage: UNK
     Route: 048
     Dates: start: 20030101, end: 20080101
  3. INHALERS [Concomitant]
     Dosage: UNK
     Route: 045
  4. YASMIN [Suspect]
     Dosage: UNK
     Dates: start: 20080101
  5. DROSPIRENONE AND ETHINYL ESTRADIOL [Suspect]
     Dosage: UNK
     Dates: start: 20080101

REACTIONS (7)
  - GALLBLADDER DISORDER [None]
  - FEAR [None]
  - PSYCHOLOGICAL TRAUMA [None]
  - PAIN [None]
  - INJURY [None]
  - ANXIETY [None]
  - EMOTIONAL DISTRESS [None]
